FAERS Safety Report 10951437 (Version 1)
Quarter: 2015Q1

REPORT INFORMATION
  Report Type: Spontaneous
  Country: DK (occurrence: DK)
  Receive Date: 20150324
  Receipt Date: 20150324
  Transmission Date: 20150721
  Serious: Yes (Hospitalization)
  Sender: FDA-Public Use
  Company Number: DK-WATSON-2015-06438

PATIENT
  Sex: Male

DRUGS (3)
  1. TESTOSTERONE (UNKNOWN) [Suspect]
     Active Substance: TESTOSTERONE
     Indication: MUSCLE BUILDING THERAPY
     Dosage: UNK UNK, 1/WEEK
     Route: 065
     Dates: start: 201303
  2. TRELSTAR [Suspect]
     Active Substance: TRIPTORELIN PAMOATE
     Indication: MUSCLE BUILDING THERAPY
     Dosage: UNK, 1/WEEK
     Route: 065
     Dates: start: 201303
  3. TRELSTAR [Suspect]
     Active Substance: TRIPTORELIN PAMOATE
     Indication: OFF LABEL USE

REACTIONS (7)
  - Left ventricular hypertrophy [Not Recovered/Not Resolved]
  - Atrial fibrillation [Not Recovered/Not Resolved]
  - Alanine aminotransferase increased [Not Recovered/Not Resolved]
  - Inappropriate schedule of drug administration [Not Recovered/Not Resolved]
  - Off label use [None]
  - Heart rate increased [Not Recovered/Not Resolved]
  - Polycythaemia [Not Recovered/Not Resolved]
